FAERS Safety Report 7713852-4 (Version None)
Quarter: 2011Q3

REPORT INFORMATION
  Report Type: 
  Country: None (occurrence: None)
  Receive Date: 20110826
  Receipt Date: 20110823
  Transmission Date: 20111222
  Serious: Yes (Life-Threatening)
  Sender: FDA-Public Use
  Company Number: GB-ELI_LILLY_AND_COMPANY-GB201106004170

PATIENT
  Age: 52 Year
  Sex: Female
  Weight: 107 kg

DRUGS (6)
  1. BYETTA [Suspect]
     Indication: DIABETES MELLITUS
     Dosage: 10 UG, BID
     Route: 058
     Dates: start: 20100506
  2. CALCICHEW D3 [Concomitant]
  3. METFORMIN HCL [Concomitant]
  4. GLICLAZIDE [Concomitant]
  5. ASPIRIN [Concomitant]
  6. SIMAVASTATIN [Concomitant]

REACTIONS (1)
  - MALIGNANT PERITONEAL NEOPLASM [None]
